FAERS Safety Report 7399616-2 (Version None)
Quarter: 2011Q2

REPORT INFORMATION
  Report Type: 
  Country: None (occurrence: None)
  Receive Date: 20110407
  Receipt Date: 20110210
  Transmission Date: 20111010
  Serious: Yes (Hospitalization, Other)
  Sender: FDA-Public Use
  Company Number: US-BAYER-201029612NA

PATIENT
  Sex: Female
  Weight: 45.805 kg

DRUGS (3)
  1. FEXOFENADINE [Concomitant]
     Dosage: 180 MG
     Route: 048
     Dates: start: 20060113
  2. YASMIN [Suspect]
  3. YAZ [Suspect]
     Dosage: 1 DF, QD
     Route: 048
     Dates: start: 20080527, end: 20080901

REACTIONS (4)
  - PULMONARY EMBOLISM [None]
  - DEPRESSION [None]
  - ANXIETY [None]
  - DEEP VEIN THROMBOSIS [None]
